FAERS Safety Report 4902065-7 (Version None)
Quarter: 2006Q1

REPORT INFORMATION
  Report Type: 
  Country: None (occurrence: None)
  Receive Date: 20060206
  Receipt Date: 20060202
  Transmission Date: 20060701
  Serious: Yes (Death)
  Sender: FDA-Public Use
  Company Number: US-GLAXOSMITHKLINE-A0592169A

PATIENT
  Age: 84 Year
  Sex: Female

DRUGS (1)
  1. VALTREX [Suspect]
     Indication: HERPES ZOSTER
     Dosage: 1000MG THREE TIMES PER DAY
     Route: 048

REACTIONS (9)
  - DISORIENTATION [None]
  - DRUG HYPERSENSITIVITY [None]
  - HEADACHE [None]
  - HYPERSENSITIVITY [None]
  - LETHARGY [None]
  - MUSCLE TWITCHING [None]
  - NAUSEA [None]
  - NERVOUS SYSTEM DISORDER [None]
  - PARAESTHESIA [None]
